FAERS Safety Report 24308515 (Version 1)
Quarter: 2024Q3

REPORT INFORMATION
  Report Type: Other
  Country: GB (occurrence: GB)
  Receive Date: 20240911
  Receipt Date: 20240911
  Transmission Date: 20241017
  Serious: Yes (Hospitalization, Other)
  Sender: BIONPHARMA
  Company Number: GB-Bion-013776

PATIENT
  Age: 41 Year
  Sex: Male

DRUGS (2)
  1. IBUPROFEN [Suspect]
     Active Substance: IBUPROFEN
     Indication: Back pain
  2. CODEINE [Concomitant]
     Active Substance: CODEINE
     Indication: Back pain

REACTIONS (1)
  - Intestinal diaphragm disease [Recovering/Resolving]
